FAERS Safety Report 7340189-8 (Version None)
Quarter: 2011Q1

REPORT INFORMATION
  Report Type: 
  Country: None (occurrence: None)
  Receive Date: 20110228
  Receipt Date: 20110222
  Transmission Date: 20110831
  Serious: Yes (Other)
  Sender: FDA-Public Use
  Company Number: GRT 2010-15822

PATIENT
  Age: 77 Year
  Sex: Female

DRUGS (3)
  1. LIDODERM [Suspect]
     Indication: PAIN
     Dosage: 1 PATCH, 4 HOURS
     Dates: start: 20100905
  2. LIDODERM [Suspect]
     Indication: ALLODYNIA
     Dosage: 1 PATCH, 4 HOURS
     Dates: start: 20100905
  3. INSULIN GLARGINE [Concomitant]

REACTIONS (4)
  - VASODILATATION [None]
  - MALAISE [None]
  - FLUSHING [None]
  - BODY TEMPERATURE INCREASED [None]
